FAERS Safety Report 8048521-7 (Version None)
Quarter: 2012Q1

REPORT INFORMATION
  Report Type: 
  Country: None (occurrence: None)
  Receive Date: 20120117
  Receipt Date: 20120113
  Transmission Date: 20120608
  Serious: No
  Sender: FDA-Public Use
  Company Number: US-PFIZER INC-2012011056

PATIENT
  Sex: Female
  Weight: 89.796 kg

DRUGS (5)
  1. LISINOPRIL [Concomitant]
     Indication: HYPERTENSION
     Dosage: 20 MG, 2X/DAY
  2. CHANTIX [Suspect]
     Dosage: 1 MG, 2X/DAY
     Dates: start: 20120101, end: 20120112
  3. CHANTIX [Suspect]
     Indication: SMOKING CESSATION THERAPY
     Dosage: 0.5 MG, DAILY
     Dates: start: 20120105, end: 20120101
  4. METFORMIN [Concomitant]
     Indication: DIABETES MELLITUS
     Dosage: 1000 MG, 2X/DAY
  5. LANTUS [Concomitant]
     Indication: DIABETES MELLITUS
     Dosage: 80 MG, DAILY

REACTIONS (3)
  - FEELING JITTERY [None]
  - NERVOUSNESS [None]
  - DRUG INTOLERANCE [None]
